FAERS Safety Report 6500507-7 (Version None)
Quarter: 2009Q4

REPORT INFORMATION
  Report Type: 
  Country: None (occurrence: None)
  Receive Date: 20091216
  Receipt Date: 20091207
  Transmission Date: 20100525
  Serious: Yes (Other)
  Sender: FDA-Public Use
  Company Number: GB-ABBOTT-08P-167-0473100-00

PATIENT
  Age: 73 Year
  Sex: Male

DRUGS (6)
  1. NIACIN [Suspect]
     Indication: HYPERCHOLESTEROLAEMIA
     Route: 048
  2. NIACIN [Suspect]
     Route: 048
  3. NIACIN [Suspect]
     Route: 048
  4. LATANOPROST [Concomitant]
     Indication: DRUG USE FOR UNKNOWN INDICATION
  5. DORZOLAMIDE HYDROCHLORIDE [Concomitant]
     Indication: DRUG USE FOR UNKNOWN INDICATION
     Dosage: 2 %
  6. DORZOLAMIDE HYDROCHLORIDE [Concomitant]

REACTIONS (1)
  - INTRAOCULAR PRESSURE INCREASED [None]
